FAERS Safety Report 10897694 (Version 1)
Quarter: 2015Q1

REPORT INFORMATION
  Report Type: Spontaneous
  Country: CN (occurrence: CN)
  Receive Date: 20150309
  Receipt Date: 20150309
  Transmission Date: 20150721
  Serious: Yes (Hospitalization)
  Sender: FDA-Public Use
  Company Number: CN-SA-2015SA027708

PATIENT
  Age: 48 Year
  Sex: Female

DRUGS (14)
  1. AVELOX [Suspect]
     Active Substance: MOXIFLOXACIN HYDROCHLORIDE
     Indication: HELICOBACTER INFECTION
     Route: 048
     Dates: start: 20121216, end: 20121227
  2. RIFAMPICIN [Suspect]
     Active Substance: RIFAMPIN
     Indication: PULMONARY TUBERCULOSIS
     Route: 048
     Dates: start: 20121203, end: 20121227
  3. CRAVIT [Suspect]
     Active Substance: LEVOFLOXACIN
     Indication: HELICOBACTER INFECTION
     Dosage: ROUTE- IV, GTT; LEVOFLOXACIN NAD SODIUM CHLORIDE INJECTION
     Route: 042
     Dates: start: 20121212, end: 20121216
  4. ETHAMBUTOL [Suspect]
     Active Substance: ETHAMBUTOL HYDROCHLORIDE
     Indication: PULMONARY TUBERCULOSIS
     Route: 048
     Dates: start: 20121203, end: 20121227
  5. CRAVIT [Suspect]
     Active Substance: LEVOFLOXACIN
     Indication: HELICOBACTER INFECTION
     Dosage: ROUTE- IV, GTT; LEVOFLOXACIN NAD SODIUM CHLORIDE INJECTION
     Route: 042
     Dates: start: 20121204, end: 20121208
  6. TRAMADOL [Concomitant]
     Active Substance: TRAMADOL
     Indication: PAIN
  7. SODIUM CHLORIDE. [Concomitant]
     Active Substance: SODIUM CHLORIDE
     Route: 042
     Dates: start: 20121212, end: 20121216
  8. CRAVIT [Suspect]
     Active Substance: LEVOFLOXACIN
     Indication: LUNG INFECTION
     Dosage: ROUTE- IV, GTT; LEVOFLOXACIN NAD SODIUM CHLORIDE INJECTION
     Route: 042
     Dates: start: 20121212, end: 20121216
  9. AVELOX [Suspect]
     Active Substance: MOXIFLOXACIN HYDROCHLORIDE
     Indication: LUNG INFECTION
     Route: 048
     Dates: start: 20121216, end: 20121227
  10. SODIUM CHLORIDE. [Concomitant]
     Active Substance: SODIUM CHLORIDE
     Dosage: IV GTT
     Route: 042
     Dates: start: 20121204, end: 20121208
  11. CRAVIT [Suspect]
     Active Substance: LEVOFLOXACIN
     Indication: LUNG INFECTION
     Dosage: ROUTE- IV, GTT; LEVOFLOXACIN NAD SODIUM CHLORIDE INJECTION
     Route: 042
     Dates: start: 20121204, end: 20121208
  12. PYRAZINAMIDE. [Suspect]
     Active Substance: PYRAZINAMIDE
     Indication: PULMONARY TUBERCULOSIS
     Route: 048
     Dates: start: 20121203, end: 20121227
  13. VORICONAZOLE. [Suspect]
     Active Substance: VORICONAZOLE
     Indication: FUNGAL INFECTION
     Route: 048
     Dates: start: 20121208, end: 20121227
  14. ISONIAZID. [Suspect]
     Active Substance: ISONIAZID
     Indication: PULMONARY TUBERCULOSIS
     Route: 048
     Dates: start: 20121203, end: 20121227

REACTIONS (1)
  - Neurotoxicity [Recovering/Resolving]

NARRATIVE: CASE EVENT DATE: 20121211
